FAERS Safety Report 6566744-0 (Version None)
Quarter: 2010Q1

REPORT INFORMATION
  Report Type: 
  Country: None (occurrence: None)
  Receive Date: 20100202
  Receipt Date: 20100201
  Transmission Date: 20100710
  Serious: Yes (Hospitalization)
  Sender: FDA-Public Use
  Company Number: BE-ABBOTT-09P-013-0610728-00

PATIENT
  Sex: Male
  Weight: 74.5 kg

DRUGS (3)
  1. KALETRA [Suspect]
     Indication: HIV INFECTION
     Dosage: DAILY-800/200MG,UNIT DOSE-400/100MG, FORM STRENTH-200/50
     Dates: start: 20091019
  2. TRUVADA [Concomitant]
     Indication: DRUG USE FOR UNKNOWN INDICATION
     Dosage: 200/245 MG DAILY
     Dates: start: 20091019
  3. BACTRIM DS [Concomitant]
     Indication: DRUG USE FOR UNKNOWN INDICATION

REACTIONS (1)
  - PULMONARY TUBERCULOSIS [None]
